FAERS Safety Report 6905345-9 (Version None)
Quarter: 2010Q3

REPORT INFORMATION
  Report Type: 
  Country: None (occurrence: None)
  Receive Date: 20100803
  Receipt Date: 20100716
  Transmission Date: 20110219
  Serious: Yes (Congenital Anomaly, Other)
  Sender: FDA-Public Use
  Company Number: 2010US-35953

PATIENT
  Sex: Female

DRUGS (4)
  1. ZIDOVUDINE [Suspect]
     Indication: ANTIRETROVIRAL THERAPY
     Dates: start: 20090318
  2. PREZISTA [Suspect]
     Indication: ANTIRETROVIRAL THERAPY
     Dosage: 1200 MG DAILY, ORAL
     Route: 048
     Dates: start: 20090310
  3. RALTEGRAVIR (RALTEGRAVIR) UNKNOWN [Suspect]
     Indication: ANTIRETROVIRAL THERAPY
     Dosage: 800MG, ORAL
     Route: 048
     Dates: start: 20090319
  4. NORVIR [Suspect]
     Indication: ANTIRETROVIRAL THERAPY
     Dosage: ORAL
     Route: 048
     Dates: start: 20100310

REACTIONS (11)
  - CARDIAC ARREST NEONATAL [None]
  - CARDIAC MURMUR [None]
  - CONGENITAL ANOMALY IN OFFSPRING [None]
  - CONGENITAL HEART VALVE DISORDER [None]
  - CONGENITAL PULMONARY VALVE DISORDER [None]
  - DRUG EXPOSURE DURING PREGNANCY [None]
  - INFANTILE APNOEIC ATTACK [None]
  - NEONATAL DISORDER [None]
  - PREGNANCY [None]
  - SUDDEN INFANT DEATH SYNDROME [None]
  - VENTRICULAR HYPERTROPHY [None]
